FAERS Safety Report 8551734-9 (Version None)
Quarter: 2012Q3

REPORT INFORMATION
  Report Type: 
  Country: None (occurrence: None)
  Receive Date: 20120723
  Receipt Date: 20120723
  Transmission Date: 20120928
  Serious: Yes (Other)
  Sender: FDA-Public Use
  Company Number: None

PATIENT
  Age: 61 Year
  Sex: Female
  Weight: 71.6683 kg

DRUGS (1)
  1. ANASTROZOLE [Suspect]
     Indication: BREAST CANCER STAGE I
     Dosage: 1MG DAILY PO
     Route: 048
     Dates: start: 20110301, end: 20120720

REACTIONS (3)
  - VAGINAL HAEMORRHAGE [None]
  - ANXIETY [None]
  - ALOPECIA [None]
